FAERS Safety Report 8176455-6 (Version None)
Quarter: 2012Q1

REPORT INFORMATION
  Report Type: 
  Country: None (occurrence: None)
  Receive Date: 20120229
  Receipt Date: 20120217
  Transmission Date: 20120608
  Serious: No
  Sender: FDA-Public Use
  Company Number: 2012SP009292

PATIENT
  Age: 36 Year
  Sex: Female

DRUGS (2)
  1. SAPHRIS [Suspect]
     Indication: SCHIZOPHRENIA
     Dosage: QD;SL
     Route: 060
     Dates: start: 20111101, end: 20111101
  2. SAPHRIS [Suspect]
     Indication: BIPOLAR DISORDER
     Dosage: QD;SL
     Route: 060
     Dates: start: 20111101, end: 20111101

REACTIONS (5)
  - DYSKINESIA [None]
  - RESTLESS LEGS SYNDROME [None]
  - DYSPNOEA [None]
  - MANIA [None]
  - CONDITION AGGRAVATED [None]
